FAERS Safety Report 15645386 (Version 2)
Quarter: 2018Q4

REPORT INFORMATION
  Report Type: Report from Study
  Country: US (occurrence: US)
  Receive Date: 20181121
  Receipt Date: 20181126
  Transmission Date: 20190205
  Serious: Yes (Death, Other)
  Sender: FDA-Public Use
  Company Number: US-SHIRE-US201844955

PATIENT
  Sex: Male

DRUGS (1)
  1. NATPARA (PARATHYROID HORMONE) [Suspect]
     Active Substance: PARATHYROID HORMONE
     Indication: HORMONE REPLACEMENT THERAPY
     Dosage: 75 ?G, 1X/DAY:QD (UNDER THE SKIN) (THIGH)
     Route: 050
     Dates: start: 20180709

REACTIONS (1)
  - Death [Fatal]
